FAERS Safety Report 15145077 (Version 4)
Quarter: 2020Q1

REPORT INFORMATION
  Report Type: Report from Study
  Country: US (occurrence: US)
  Receive Date: 20180713
  Receipt Date: 20200314
  Transmission Date: 20200409
  Serious: Yes (Death, Hospitalization, Other)
  Sender: FDA-Public Use
  Company Number: US-ACTELION-A-NJ2018-175346

PATIENT
  Age: 81 Year
  Sex: Female

DRUGS (3)
  1. ADCIRCA [Concomitant]
     Active Substance: TADALAFIL
  2. TRACLEER [Suspect]
     Active Substance: BOSENTAN
     Indication: PULMONARY ARTERIAL HYPERTENSION
     Dosage: 125 MG, BID
     Route: 048
  3. COUMADIN [Concomitant]
     Active Substance: WARFARIN SODIUM

REACTIONS (10)
  - Haematocrit decreased [Recovering/Resolving]
  - Haemorrhage [Unknown]
  - Anaemia [Recovering/Resolving]
  - Pelvic fracture [Unknown]
  - Death [Fatal]
  - Hip fracture [Unknown]
  - Hip surgery [Unknown]
  - Fall [Unknown]
  - Transfusion [Unknown]
  - Femur fracture [Unknown]

NARRATIVE: CASE EVENT DATE: 20180625
